FAERS Safety Report 18022105 (Version 1)
Quarter: 2020Q3

REPORT INFORMATION
  Report Type: Spontaneous
  Country: US (occurrence: US)
  Receive Date: 20200714
  Receipt Date: 20200714
  Transmission Date: 20201103
  Serious: Yes (Other)
  Sender: FDA-Public Use
  Company Number: US-ELI_LILLY_AND_COMPANY-US202007001883

PATIENT
  Age: 67 Year
  Sex: Female

DRUGS (1)
  1. HUMULIN R [Suspect]
     Active Substance: INSULIN HUMAN
     Indication: PRODUCT USED FOR UNKNOWN INDICATION
     Dosage: 5 U, DAILY
     Route: 058

REACTIONS (3)
  - Vascular occlusion [Unknown]
  - Pulmonary thrombosis [Unknown]
  - Diabetic bullosis [Recovering/Resolving]

NARRATIVE: CASE EVENT DATE: 202006
